FAERS Safety Report 13109306 (Version 1)
Quarter: 2017Q1

REPORT INFORMATION
  Report Type: Spontaneous
  Country: US (occurrence: US)
  Receive Date: 20170112
  Receipt Date: 20170112
  Transmission Date: 20170428
  Serious: Yes (Other)
  Sender: FDA-Public Use
  Company Number: US-BRISTOL-MYERS SQUIBB COMPANY-BMS-2017-000961

PATIENT
  Sex: Female
  Weight: 81.19 kg

DRUGS (2)
  1. DEXAMYCIN                          /00069801/ [Concomitant]
     Indication: PRODUCT USED FOR UNKNOWN INDICATION
     Dosage: 25 MG, UNK
     Route: 065
  2. EMPLICITI [Suspect]
     Active Substance: ELOTUZUMAB
     Indication: PLASMA CELL MYELOMA
     Dosage: UNK
     Route: 065
     Dates: start: 20160608

REACTIONS (9)
  - Gastritis [Unknown]
  - Abdominal discomfort [Unknown]
  - Nausea [Unknown]
  - Abdominal pain upper [Unknown]
  - Colon cancer [Unknown]
  - Eating disorder [Unknown]
  - Thyroid function test abnormal [Unknown]
  - Diarrhoea [Unknown]
  - Flatulence [Unknown]
